FAERS Safety Report 8824524 (Version 3)
Quarter: 2012Q4

REPORT INFORMATION
  Report Type: Report from Study
  Country: GB (occurrence: GB)
  Receive Date: 20121004
  Receipt Date: 20121109
  Transmission Date: 20130627
  Serious: Yes (Hospitalization)
  Sender: FDA-Public Use
  Company Number: GB-SANOFI-AVENTIS-2012SA061870

PATIENT
  Age: 69 Year
  Sex: Male
  Weight: 86.5 kg

DRUGS (9)
  1. CABAZITAXEL [Suspect]
     Indication: PROSTATIC CANCER METASTATIC
     Route: 041
     Dates: start: 20111208, end: 20111208
  2. CABAZITAXEL [Suspect]
     Indication: PROSTATIC CANCER METASTATIC
     Route: 041
     Dates: start: 20120216, end: 20120216
  3. PREDNISOLONE [Suspect]
     Indication: PROSTATE CANCER METASTATIC
     Route: 048
     Dates: start: 20111208
  4. ZOLEDRONIC ACID [Concomitant]
     Indication: PROPHYLAXIS
     Dosage: dosing information not provided
     Route: 040
     Dates: start: 20080911
  5. METOCLOPRAMIDE [Concomitant]
     Indication: PROPHYLAXIS
     Dosage: dosing information not reported
     Route: 048
     Dates: start: 20111208
  6. DEXAMETHASONE [Concomitant]
     Indication: PROPHYLAXIS
     Dosage: dosing information not provided
     Route: 048
     Dates: start: 20111208
  7. TAZOCIN [Concomitant]
     Dosage: dosing information not provided
     Route: 040
     Dates: start: 20120229, end: 20120302
  8. GENTAMICIN [Concomitant]
     Dosage: dosing information not provided
     Route: 040
     Dates: start: 20120229, end: 20120302
  9. AMOXICILLIN [Concomitant]
     Dosage: dosing information not provided
     Route: 040
     Dates: start: 20120302, end: 20120306

REACTIONS (1)
  - Pulmonary embolism [Recovered/Resolved]
